FAERS Safety Report 18396274 (Version 5)
Quarter: 2020Q4

REPORT INFORMATION
  Report Type: Other
  Country: CA (occurrence: CA)
  Receive Date: 20201019
  Receipt Date: 20201222
  Transmission Date: 20210114
  Serious: Yes (Hospitalization, Other)
  Sender: FDA-Public Use
  Company Number: CA-ROCHE-1182274

PATIENT
  Age: 81 Year
  Sex: Female
  Weight: 68 kg

DRUGS (22)
  1. ACTEMRA [Suspect]
     Active Substance: TOCILIZUMAB
     Route: 042
     Dates: start: 20141031
  2. LASIX [Concomitant]
     Active Substance: FUROSEMIDE
  3. ACTEMRA [Suspect]
     Active Substance: TOCILIZUMAB
     Route: 042
     Dates: start: 20130215
  4. ADVAIR HFA [Concomitant]
     Active Substance: FLUTICASONE PROPIONATE\SALMETEROL XINAFOATE
     Indication: PRODUCT USED FOR UNKNOWN INDICATION
  5. RANITIDINE. [Concomitant]
     Active Substance: RANITIDINE
     Indication: PRODUCT USED FOR UNKNOWN INDICATION
  6. TYLENOL ARTHRITIS PAIN [Concomitant]
     Active Substance: ACETAMINOPHEN
     Indication: PRODUCT USED FOR UNKNOWN INDICATION
  7. ACTEMRA [Suspect]
     Active Substance: TOCILIZUMAB
     Route: 042
     Dates: start: 20130221
  8. RISEDRONATE [Concomitant]
     Active Substance: RISEDRONATE SODIUM
     Indication: PRODUCT USED FOR UNKNOWN INDICATION
  9. LASIX [Concomitant]
     Active Substance: FUROSEMIDE
     Indication: PRODUCT USED FOR UNKNOWN INDICATION
     Route: 042
  10. ACTEMRA [Suspect]
     Active Substance: TOCILIZUMAB
     Route: 042
     Dates: start: 20151123
  11. TYLENOL [Concomitant]
     Active Substance: ACETAMINOPHEN
     Indication: ARTHRITIS
  12. SENOKOT [Concomitant]
     Active Substance: SENNOSIDES
     Indication: PRODUCT USED FOR UNKNOWN INDICATION
     Dosage: ONGOING
  13. ROSUVASTATIN. [Concomitant]
     Active Substance: ROSUVASTATIN
     Indication: PRODUCT USED FOR UNKNOWN INDICATION
  14. METOPROLOL. [Concomitant]
     Active Substance: METOPROLOL
     Indication: PRODUCT USED FOR UNKNOWN INDICATION
  15. VENOFER [Concomitant]
     Active Substance: IRON SUCROSE
     Indication: PRODUCT USED FOR UNKNOWN INDICATION
     Dosage: ONGOING
  16. ACTEMRA [Suspect]
     Active Substance: TOCILIZUMAB
     Indication: RHEUMATOID ARTHRITIS
     Route: 042
     Dates: start: 20121221
  17. ACTEMRA [Suspect]
     Active Substance: TOCILIZUMAB
     Dosage: ONGOING:YES BATCH/LOT: B2096B19 EXPIRY: 31/OCT/, BATCH/LOT B3032B03 EXPIRY: 2022/MAR/31
     Route: 042
     Dates: start: 20181022
  18. SYNTHROID [Concomitant]
     Active Substance: LEVOTHYROXINE SODIUM
     Indication: PRODUCT USED FOR UNKNOWN INDICATION
  19. SPIRIVA [Concomitant]
     Active Substance: TIOTROPIUM BROMIDE MONOHYDRATE
     Indication: PRODUCT USED FOR UNKNOWN INDICATION
  20. BUDESONIDE. [Concomitant]
     Active Substance: BUDESONIDE
     Indication: PRODUCT USED FOR UNKNOWN INDICATION
  21. CALCIUM [Concomitant]
     Active Substance: CALCIUM
     Indication: PRODUCT USED FOR UNKNOWN INDICATION
  22. AZATHIOPRINE. [Concomitant]
     Active Substance: AZATHIOPRINE
     Indication: PRODUCT USED FOR UNKNOWN INDICATION

REACTIONS (37)
  - Nasopharyngitis [Unknown]
  - Dizziness [Unknown]
  - Blood iron decreased [Unknown]
  - Oxygen saturation decreased [Recovered/Resolved]
  - Heart rate decreased [Unknown]
  - Haemorrhage [Recovered/Resolved]
  - Asthenia [Unknown]
  - Haemoglobin decreased [Unknown]
  - Rheumatoid arthritis [Not Recovered/Not Resolved]
  - Nasopharyngitis [Recovered/Resolved]
  - Weight decreased [Unknown]
  - Disability assessment scale score increased [Unknown]
  - Blood pressure systolic increased [Unknown]
  - Oxygen saturation decreased [Unknown]
  - Intentional product use issue [Unknown]
  - Blood pressure diastolic decreased [Unknown]
  - Oedema peripheral [Recovered/Resolved]
  - Cardiac disorder [Recovering/Resolving]
  - Weight increased [Unknown]
  - Poor venous access [Unknown]
  - Pneumonia [Unknown]
  - Lower respiratory tract infection [Unknown]
  - Dyspnoea [Not Recovered/Not Resolved]
  - Blood pressure fluctuation [Unknown]
  - Blood pressure diastolic abnormal [Unknown]
  - Pulmonary oedema [Unknown]
  - Infection [Unknown]
  - Productive cough [Unknown]
  - Gastrointestinal haemorrhage [Recovered/Resolved]
  - Contusion [Not Recovered/Not Resolved]
  - Hypertension [Not Recovered/Not Resolved]
  - Chronic obstructive pulmonary disease [Unknown]
  - Pharyngitis [Recovered/Resolved]
  - Urinary tract infection [Recovered/Resolved]
  - Peripheral swelling [Unknown]
  - Off label use [Unknown]
  - Pulmonary oedema [Recovered/Resolved]

NARRATIVE: CASE EVENT DATE: 2013
